FAERS Safety Report 6439665-1 (Version None)
Quarter: 2009Q4

REPORT INFORMATION
  Report Type: 
  Country: None (occurrence: None)
  Receive Date: 20091112
  Receipt Date: 20091112
  Transmission Date: 20100525
  Serious: Yes (Other)
  Sender: FDA-Public Use
  Company Number: None

PATIENT
  Age: 29 Year
  Sex: Female
  Weight: 65.318 kg

DRUGS (2)
  1. LEVAQUIN [Suspect]
     Indication: SINUSITIS
     Dosage: 1 PILL DAILY FOR 14 DAYS PO
     Route: 048
     Dates: start: 20090925, end: 20091009
  2. LEVAQUIN [Suspect]
     Indication: SINUSITIS
     Dosage: 1 PILL DAILY FOR 14 DAYS PO
     Route: 048
     Dates: start: 20091021, end: 20091103

REACTIONS (2)
  - PAIN IN EXTREMITY [None]
  - TENDONITIS [None]
